FAERS Safety Report 8999945 (Version 2)
Quarter: 2013Q1

REPORT INFORMATION
  Report Type: Spontaneous
  Country: RU (occurrence: RU)
  Receive Date: 20130102
  Receipt Date: 20130206
  Transmission Date: 20140127
  Serious: Yes (Death)
  Sender: FDA-Public Use
  Company Number: RU-BAYER-2012-135067

PATIENT
  Sex: Female
  Weight: 124 kg

DRUGS (6)
  1. ULTRAVIST [Suspect]
     Indication: COMPUTERISED TOMOGRAM ABDOMEN
     Dosage: 90 ML, ONCE
     Route: 042
     Dates: start: 20121224, end: 20121224
  2. ULTRAVIST [Suspect]
     Indication: METASTASES TO LIVER
  3. SIOFOR [Concomitant]
     Dosage: 850 MG, BID
     Route: 048
     Dates: start: 2011
  4. METHYLURACIL [Concomitant]
     Indication: PROPHYLAXIS
     Dosage: UNK
     Route: 054
     Dates: start: 20121026
  5. PYRACETAM [Concomitant]
     Dosage: 10 ML, QD
     Route: 042
     Dates: start: 20121224
  6. BIFIDUMBACTERIN [Concomitant]
     Indication: PROPHYLAXIS
     Dosage: 5 DF, BID
     Route: 048
     Dates: start: 20121026

REACTIONS (5)
  - Cardiotoxicity [Fatal]
  - Anaphylactic shock [Fatal]
  - Malaise [Fatal]
  - Cyanosis [Fatal]
  - Foaming at mouth [Fatal]
